FAERS Safety Report 4679426-7 (Version None)
Quarter: 2005Q2

REPORT INFORMATION
  Report Type: 
  Country: None (occurrence: None)
  Receive Date: 20050602
  Receipt Date: 20050504
  Transmission Date: 20051028
  Serious: Yes (Other)
  Sender: FDA-Public Use
  Company Number: PHNU2005DE01857

PATIENT
  Age: 70 Year
  Sex: Female

DRUGS (4)
  1. AMITRIPTYLINE HYDROCHLORIDE [Concomitant]
     Indication: DEPRESSION
  2. SUCRALFATE [Concomitant]
     Indication: GASTRECTOMY
     Route: 048
     Dates: start: 20020101
  3. LERCANIDIPINE [Concomitant]
     Indication: HYPERTENSION
     Route: 048
     Dates: start: 20040201
  4. PROVAS [Suspect]
     Indication: HYPERTENSION
     Dosage: 80 MG/D
     Route: 048
     Dates: start: 20050420, end: 20050425

REACTIONS (3)
  - JOINT EFFUSION [None]
  - JOINT SWELLING [None]
  - MONARTHRITIS [None]
